FAERS Safety Report 6663160-8 (Version None)
Quarter: 2010Q2

REPORT INFORMATION
  Report Type: 
  Country: None (occurrence: None)
  Receive Date: 20100401
  Receipt Date: 20100323
  Transmission Date: 20101027
  Serious: Yes (Hospitalization)
  Sender: FDA-Public Use
  Company Number: HN-ASTRAZENECA-2010SE12952

PATIENT
  Sex: Male

DRUGS (1)
  1. SEROQUEL [Suspect]
     Dosage: TWO TABLETS EVERY FOUR HOURS
     Route: 048

REACTIONS (3)
  - HYPOVOLAEMIC SHOCK [None]
  - OVERDOSE [None]
  - RESPIRATORY ARREST [None]
